FAERS Safety Report 4732425-9 (Version None)
Quarter: 2005Q3

REPORT INFORMATION
  Report Type: 
  Country: None (occurrence: None)
  Receive Date: 20050801
  Receipt Date: 20050722
  Transmission Date: 20060218
  Serious: Yes (Other)
  Sender: FDA-Public Use
  Company Number: 200511474BWH

PATIENT
  Sex: Female

DRUGS (4)
  1. CIPRO [Suspect]
     Dosage: ORAL
     Route: 048
  2. NEOMYCIN [Suspect]
  3. POLYMYXIN B SULFATE [Suspect]
  4. HYDROCORTISONE [Suspect]
     Dosage: OPHTHALMIC (OCULAR)
     Route: 047

REACTIONS (13)
  - DEAFNESS [None]
  - DRUG INTERACTION [None]
  - EAR PAIN [None]
  - HEARING IMPAIRED [None]
  - LABYRINTHITIS [None]
  - OTITIS MEDIA [None]
  - OTORRHOEA [None]
  - OTOTOXICITY [None]
  - PRURITUS [None]
  - PURULENCE [None]
  - TINNITUS [None]
  - TYMPANIC MEMBRANE PERFORATION [None]
  - VERTIGO [None]
